FAERS Safety Report 13985205 (Version 1)
Quarter: 2017Q3

REPORT INFORMATION
  Report Type: Spontaneous
  Country: CA (occurrence: CA)
  Receive Date: 20170919
  Receipt Date: 20170919
  Transmission Date: 20171128
  Serious: Yes (Other)
  Sender: FDA-Public Use
  Company Number: CA-009507513-1709CAN008296

PATIENT
  Age: 71 Year
  Sex: Male

DRUGS (1)
  1. NITRO-DUR [Suspect]
     Active Substance: NITROGLYCERIN
     Indication: CHEST PAIN
     Dosage: 0.4MG/HOUR (RATED RELEASE IN VIVO), 1 DOSAGE FORM, 1 EVERY 24 HOURS
     Route: 062

REACTIONS (1)
  - Application site rash [Recovered/Resolved]
